FAERS Safety Report 19977832 (Version 1)
Quarter: 2021Q4

REPORT INFORMATION
  Report Type: Spontaneous
  Country: ES (occurrence: ES)
  Receive Date: 20211020
  Receipt Date: 20211020
  Transmission Date: 20220303
  Serious: Yes (Life-Threatening, Hospitalization, Other)
  Sender: FDA-Public Use
  Company Number: None

PATIENT
  Age: 46 Year
  Sex: Female

DRUGS (3)
  1. QUETIAPINE [Interacting]
     Active Substance: QUETIAPINE
     Indication: Product used for unknown indication
     Dosage: 10.95 GRAM, TOTAL
     Route: 048
     Dates: start: 20210616, end: 20210616
  2. LORAZEPAM [Interacting]
     Active Substance: LORAZEPAM
     Indication: Product used for unknown indication
     Dosage: 50 MILLIGRAM, TOTAL
     Route: 048
     Dates: start: 20210616, end: 20210616
  3. LITHIUM CARBONATE [Interacting]
     Active Substance: LITHIUM CARBONATE
     Indication: Product used for unknown indication
     Dosage: 7.6 GRAM, TOTAL
     Route: 048
     Dates: start: 20210616, end: 20210616

REACTIONS (3)
  - Depressed level of consciousness [Recovered/Resolved]
  - Suicide attempt [Unknown]
  - Drug interaction [Unknown]

NARRATIVE: CASE EVENT DATE: 20210616
